FAERS Safety Report 8816409 (Version 1)
Quarter: 2012Q4

REPORT INFORMATION
  Report Type: Spontaneous
  Country: GB (occurrence: None)
  Receive Date: 20120927
  Receipt Date: 20120927
  Transmission Date: 20130627
  Serious: Yes (Other)
  Sender: FDA-Public Use
  Company Number: DSA_59805_2012

PATIENT
  Age: 14 Year
  Sex: Male

DRUGS (4)
  1. METRONIDAZOLE (METRONIDAZOLE) [Suspect]
     Indication: LIMB INJURY
     Dosage: 500, unit unknown
     Dates: start: 20120829, end: 20120829
  2. PARACETAMOL [Concomitant]
  3. CODEINE [Concomitant]
  4. FLUCLOXACILLIN [Concomitant]

REACTIONS (3)
  - Chest pain [None]
  - Tachycardia [None]
  - Hyperhidrosis [None]
